FAERS Safety Report 5871247-2 (Version None)
Quarter: 2008Q3

REPORT INFORMATION
  Report Type: 
  Country: None (occurrence: None)
  Receive Date: 20080905
  Receipt Date: 20080827
  Transmission Date: 20090109
  Serious: Yes (Life-Threatening, Other)
  Sender: FDA-Public Use
  Company Number: GB-RANBAXY-2008RR-17621

PATIENT

DRUGS (9)
  1. FRUSEMIDE [Suspect]
     Indication: DRUG USE FOR UNKNOWN INDICATION
     Dosage: 20 MG, UNK
     Route: 048
     Dates: start: 20071120
  2. FRUSEMIDE [Suspect]
     Dosage: 40 MG, UNK
  3. RAMIPRIL 2.5 MG CAPSULES [Suspect]
     Indication: LEFT VENTRICULAR HYPERTROPHY
     Dosage: 2.5 MG, QD
     Route: 048
     Dates: start: 20070918, end: 20080115
  4. RAMIPRIL 2.5 MG CAPSULES [Suspect]
     Dosage: 10 MG, QD
     Route: 048
     Dates: start: 20080115, end: 20080301
  5. DIHYDROCODEINE BITARTRATE INJ [Concomitant]
     Indication: PAIN
     Dosage: 60 MG, QID
     Route: 048
     Dates: start: 19910101
  6. IBUPROFEN [Concomitant]
     Indication: PAIN
     Dosage: 1600 MG, QD
     Route: 048
     Dates: start: 20060101
  7. LEVOTHYROXINE SODIUM [Concomitant]
     Indication: HYPOTHYROIDISM
     Dosage: 100 UG, UNK
     Route: 048
     Dates: start: 20050101
  8. OMEPRAZOLE [Concomitant]
     Indication: PROPHYLAXIS
     Dosage: 20 MG, UNK
     Route: 048
     Dates: start: 20060101
  9. TIBOLONE [Concomitant]
     Dosage: 2.5 MG, QD
     Route: 048
     Dates: start: 19970101

REACTIONS (8)
  - ASTHMA LATE ONSET [None]
  - BRONCHOSPASM [None]
  - CHRONIC OBSTRUCTIVE PULMONARY DISEASE [None]
  - COUGH [None]
  - DYSPNOEA [None]
  - LOSS OF CONSCIOUSNESS [None]
  - MALAISE [None]
  - WHEEZING [None]
